FAERS Safety Report 9628569 (Version 1)
Quarter: 2013Q4

REPORT INFORMATION
  Report Type: Spontaneous
  Country: FR (occurrence: FR)
  Receive Date: 20131017
  Receipt Date: 20131017
  Transmission Date: 20140711
  Serious: Yes (Hospitalization)
  Sender: FDA-Public Use
  Company Number: FR-ROCHE-1288817

PATIENT
  Age: 82 Year
  Sex: Male

DRUGS (5)
  1. ZELBORAF [Suspect]
     Indication: NODULAR MELANOMA
     Dosage: 240 MG
     Route: 048
     Dates: start: 201301, end: 201304
  2. ZELBORAF [Suspect]
     Dosage: 2 TABLETS TWICE DAILY
     Route: 048
     Dates: start: 20130814
  3. FINASTERIDE [Concomitant]
     Route: 065
  4. ALFUZOSINE [Concomitant]
     Route: 065
  5. ACEBUTOLOL [Concomitant]
     Indication: PRODUCT USED FOR UNKNOWN INDICATION
     Route: 065

REACTIONS (3)
  - Neuropathy peripheral [Recovering/Resolving]
  - Balance disorder [Recovering/Resolving]
  - Cerebellar syndrome [Recovering/Resolving]
